FAERS Safety Report 26026134 (Version 1)
Quarter: 2025Q4

REPORT INFORMATION
  Report Type: Spontaneous
  Country: CH (occurrence: CH)
  Receive Date: 20251111
  Receipt Date: 20251111
  Transmission Date: 20260117
  Serious: Yes (Life-Threatening, Hospitalization, Other)
  Sender: SANDOZ
  Company Number: None

PATIENT
  Age: 57 Year
  Sex: Female
  Weight: 78.5 kg

DRUGS (8)
  1. ATORVASTATIN\EZETIMIBE [Suspect]
     Active Substance: ATORVASTATIN\EZETIMIBE
     Indication: Coronary artery disease
     Dosage: 10/40 MG
     Route: 048
     Dates: start: 20250709
  2. PANTOPRAZOLE SODIUM [Concomitant]
     Active Substance: PANTOPRAZOLE SODIUM
     Indication: Product used for unknown indication
     Dosage: UNK
     Route: 048
  3. Perindopril + Indapamida Mepha [Concomitant]
     Indication: Product used for unknown indication
     Dosage: 5 MG/ 12.5 MG 1-0-0
     Route: 048
  4. RANEXA [Concomitant]
     Active Substance: RANOLAZINE
     Indication: Coronary artery disease
     Dosage: 500 MG, Q12H
     Route: 048
  5. TORSEMIDE [Concomitant]
     Active Substance: TORSEMIDE
     Indication: Product used for unknown indication
     Dosage: UNK
     Route: 048
  6. URSODIOL [Concomitant]
     Active Substance: URSODIOL
     Indication: Primary biliary cholangitis
     Route: 048
  7. ASPIRIN [Interacting]
     Active Substance: ASPIRIN
     Indication: Coronary artery disease
     Dosage: UNK
     Route: 048
  8. BISOPROLOL FUMARATE [Interacting]
     Active Substance: BISOPROLOL FUMARATE
     Indication: Coronary artery disease
     Dosage: UNK
     Route: 048

REACTIONS (1)
  - Rhabdomyolysis [Recovering/Resolving]
